FAERS Safety Report 25452674 (Version 1)
Quarter: 2025Q2

REPORT INFORMATION
  Report Type: Spontaneous
  Country: US (occurrence: US)
  Receive Date: 20250618
  Receipt Date: 20250618
  Transmission Date: 20250717
  Serious: Yes (Hospitalization)
  Sender: DIFGEN PHARMACEUTICALS LLC
  Company Number: US-Difgen-012032

PATIENT
  Age: 37 Year
  Sex: Male

DRUGS (3)
  1. METHAMPHETAMINE [Suspect]
     Active Substance: METHAMPHETAMINE
     Indication: Product used for unknown indication
     Route: 065
  2. GLIMEPIRIDE [Suspect]
     Active Substance: GLIMEPIRIDE
     Indication: Product used for unknown indication
     Route: 065
  3. FENTANYL [Suspect]
     Active Substance: FENTANYL
     Indication: Product used for unknown indication
     Route: 065

REACTIONS (3)
  - Adulterated product [Recovered/Resolved]
  - Substance use [Recovered/Resolved]
  - Hypoglycaemia [Recovered/Resolved]
